FAERS Safety Report 25181976 (Version 6)
Quarter: 2025Q4

REPORT INFORMATION
  Report Type: Report from Study
  Country: EU (occurrence: EU)
  Receive Date: 20250410
  Receipt Date: 20251216
  Transmission Date: 20260117
  Serious: Yes (Hospitalization)
  Sender: ABBVIE
  Company Number: EU-ABBVIE-6218550

PATIENT
  Age: 83 Year
  Sex: Female
  Weight: 40 kg

DRUGS (11)
  1. FOSCARBIDOPA\FOSLEVODOPA [Suspect]
     Active Substance: FOSCARBIDOPA\FOSLEVODOPA
     Indication: Parkinson^s disease
     Dosage: DURATION OF DAILY INFUSION: LESS THAN 24 HOUR.?FLD/FCD DOSE: 0.3 ML, FLOW RATE 0.35 ML/H,?DAILY D...
     Route: 058
     Dates: start: 20250325, end: 2025
  2. FOSCARBIDOPA\FOSLEVODOPA [Suspect]
     Active Substance: FOSCARBIDOPA\FOSLEVODOPA
     Route: 058
     Dates: start: 20250403, end: 202504
  3. FOSCARBIDOPA\FOSLEVODOPA [Suspect]
     Active Substance: FOSCARBIDOPA\FOSLEVODOPA
     Dosage: DURATION OF DAILY INFUSION LESS THAN 24 HOUR,?FLD/FCD DOSE 0.30 ML, FLOW RATE: 0.30 ML/H, DAILY D...
     Route: 058
     Dates: start: 20250407, end: 20250408
  4. FOSCARBIDOPA\FOSLEVODOPA [Suspect]
     Active Substance: FOSCARBIDOPA\FOSLEVODOPA
     Dosage: LAST ADMIN DATE: APR 2025.
     Route: 058
     Dates: start: 20250408, end: 202504
  5. FOSCARBIDOPA\FOSLEVODOPA [Suspect]
     Active Substance: FOSCARBIDOPA\FOSLEVODOPA
     Dosage: DURATION OF DAILY INFUSION: LESS THAN 24 HOUR,?SPECIFY FLD/FCD DOSE: 0.3ML,?SPECIFY FLOW RATE 0.3...
     Route: 058
     Dates: start: 20250416, end: 20250729
  6. FOSCARBIDOPA\FOSLEVODOPA [Suspect]
     Active Substance: FOSCARBIDOPA\FOSLEVODOPA
     Dosage: DURATION OF DAILY INFUSION: LESS THAN 24 HOUR,?SPECIFY FLD/FCD DOSE: 0.3ML,?SPECIFY FLOW RATE 0.4...
     Route: 058
     Dates: start: 20250729
  7. LANSOPRAZOLE [Concomitant]
     Active Substance: LANSOPRAZOLE
     Indication: Product used for unknown indication
  8. TAHOR [Concomitant]
     Active Substance: ATORVASTATIN CALCIUM
     Indication: Product used for unknown indication
  9. FOLIC ACID [Concomitant]
     Active Substance: FOLIC ACID
     Indication: Product used for unknown indication
  10. BENSERAZIDE HYDROCHLORIDE\LEVODOPA [Concomitant]
     Active Substance: BENSERAZIDE HYDROCHLORIDE\LEVODOPA
     Indication: Parkinson^s disease
     Dosage: 125
     Dates: start: 20250424, end: 20250729
  11. BENSERAZIDE\LEVODOPA [Concomitant]
     Active Substance: BENSERAZIDE\LEVODOPA
     Indication: Parkinson^s disease
     Dosage: INTERMITTENT TREATMENT
     Dates: start: 20250730

REACTIONS (1)
  - Femoral neck fracture [Recovered/Resolved with Sequelae]

NARRATIVE: CASE EVENT DATE: 20250403
